FAERS Safety Report 7127821-9 (Version None)
Quarter: 2010Q4

REPORT INFORMATION
  Report Type: 
  Country: None (occurrence: None)
  Receive Date: 20101130
  Receipt Date: 20101116
  Transmission Date: 20110411
  Serious: Yes (Other)
  Sender: FDA-Public Use
  Company Number: US-CELGENEUS-163-21880-10100381

PATIENT
  Sex: Female
  Weight: 69.916 kg

DRUGS (2)
  1. REVLIMID [Suspect]
     Indication: MULTIPLE MYELOMA
     Route: 048
     Dates: start: 20100908, end: 20100929
  2. REVLIMID [Suspect]
     Route: 048
     Dates: start: 20101006

REACTIONS (4)
  - FATIGUE [None]
  - LEUKAEMIA PLASMACYTIC [None]
  - PANCYTOPENIA [None]
  - RASH [None]
